FAERS Safety Report 10273322 (Version 1)
Quarter: 2014Q2

REPORT INFORMATION
  Report Type: Spontaneous
  Country: US (occurrence: None)
  Receive Date: 20140630
  Receipt Date: 20140630
  Transmission Date: 20141212
  Serious: Yes (Hospitalization)
  Sender: FDA-Public Use
  Company Number: None

PATIENT
  Age: 30 Year
  Sex: Male
  Weight: 78.6 kg

DRUGS (1)
  1. CEPHALEXIN [Suspect]
     Route: 048
     Dates: start: 20140328, end: 20140410

REACTIONS (2)
  - Anaphylactic reaction [None]
  - Myalgia [None]
